FAERS Safety Report 17548956 (Version 1)
Quarter: 2020Q1

REPORT INFORMATION
  Report Type: Report from Study
  Country: DE (occurrence: DE)
  Receive Date: 20200317
  Receipt Date: 20200317
  Transmission Date: 20200409
  Serious: Yes (Other)
  Sender: FDA-Public Use
  Company Number: DE-ROCHE-2563818

PATIENT
  Age: 48 Year
  Sex: Male
  Weight: 92 kg

DRUGS (10)
  1. CETRIZINE [Concomitant]
     Active Substance: CETIRIZINE HYDROCHLORIDE
     Indication: MENISCUS INJURY
     Route: 048
     Dates: start: 20190415
  2. DIMETINDENE [Concomitant]
     Active Substance: DIMETHINDENE
     Indication: PREMEDICATION
     Route: 040
     Dates: start: 20181002, end: 20181016
  3. PARACETAMOL [Concomitant]
     Active Substance: ACETAMINOPHEN
     Route: 040
     Dates: start: 20181002, end: 20181016
  4. PREDNISOLONE. [Concomitant]
     Active Substance: PREDNISOLONE
     Route: 040
     Dates: start: 20181002, end: 20181016
  5. PARACETAMOL [Concomitant]
     Active Substance: ACETAMINOPHEN
     Indication: PREMEDICATION
     Route: 048
     Dates: start: 20190415
  6. IBUPROFEN. [Concomitant]
     Active Substance: IBUPROFEN
     Indication: MENISCUS INJURY
     Route: 048
     Dates: start: 20181128, end: 20181204
  7. PREDNISOLONE. [Concomitant]
     Active Substance: PREDNISOLONE
     Indication: PREMEDICATION
     Route: 041
     Dates: start: 20190415
  8. OCRELIZUMAB. [Suspect]
     Active Substance: OCRELIZUMAB
     Indication: MULTIPLE SCLEROSIS
     Route: 042
     Dates: start: 20190415
  9. CLEXANE [Concomitant]
     Active Substance: ENOXAPARIN SODIUM
     Route: 058
     Dates: start: 20181128, end: 20181204
  10. OCRELIZUMAB. [Suspect]
     Active Substance: OCRELIZUMAB
     Route: 042
     Dates: start: 20181002, end: 20181016

REACTIONS (1)
  - Eye infection bacterial [Recovered/Resolved]

NARRATIVE: CASE EVENT DATE: 20200225
